FAERS Safety Report 21655554 (Version 1)
Quarter: 2022Q4

REPORT INFORMATION
  Report Type: Spontaneous
  Country: US (occurrence: None)
  Receive Date: 20221129
  Receipt Date: 20221129
  Transmission Date: 20230113
  Serious: No
  Sender: FDA-Public Use
  Company Number: 2022A370048

PATIENT
  Age: 65 Year
  Sex: Male
  Weight: 102.1 kg

DRUGS (1)
  1. BUDESONIDE\FORMOTEROL\GLYCOPYRRONIUM [Suspect]
     Active Substance: BUDESONIDE\FORMOTEROL\GLYCOPYRRONIUM
     Indication: Lung disorder
     Dosage: TWO INHALATIONS TWICE A DAY
     Route: 055
     Dates: start: 202209, end: 202210

REACTIONS (3)
  - Headache [Not Recovered/Not Resolved]
  - Product use issue [Unknown]
  - Product administration error [Recovered/Resolved]

NARRATIVE: CASE EVENT DATE: 20220901
